FAERS Safety Report 7656156-0 (Version None)
Quarter: 2011Q3

REPORT INFORMATION
  Report Type: 
  Country: None (occurrence: None)
  Receive Date: 20110804
  Receipt Date: 20110802
  Transmission Date: 20111222
  Serious: Yes (Other)
  Sender: FDA-Public Use
  Company Number: PL-PFIZER INC-2011175899

PATIENT
  Age: 82 Year
  Sex: Male
  Weight: 70 kg

DRUGS (14)
  1. TAMSULOSIN HYDROCHLORIDE [Concomitant]
     Dosage: 0.4
  2. FOSAMAX [Concomitant]
     Dosage: UNK
  3. OLFEN - SLOW RELEASE [Suspect]
     Dosage: 75 MG, UNK
  4. DONEPEZIL [Concomitant]
     Dosage: 10 MG, 1X/DAY
  5. EFFOX LONG [Concomitant]
     Dosage: 50 MG, UNK
  6. NEURONTIN [Suspect]
     Dosage: 100 MG, 3X/DAY
  7. PANTOPRAZOLE [Concomitant]
     Dosage: 20 MG, UNK
  8. METOPROLOL SUCCINATE [Concomitant]
     Dosage: 50 MG, 1X/DAY
  9. VENLAFAXINE [Concomitant]
     Dosage: 37.5, 1X/DAY
  10. MEMANTINE HYDROCHLORIDE [Suspect]
     Dosage: 10 MG 0.25 TABLET
  11. POLFILIN [Concomitant]
     Dosage: 800 MG, UNK
  12. CREON [Concomitant]
     Dosage: 25000
  13. PROSCAR [Concomitant]
     Dosage: 5 MG, UNK
  14. TRIMETAZIDINE [Concomitant]
     Dosage: UNK

REACTIONS (3)
  - ERYTHEMA ANNULARE [None]
  - PURPURA [None]
  - THROMBOCYTOPENIA [None]
